FAERS Safety Report 24455878 (Version 2)
Quarter: 2024Q4

REPORT INFORMATION
  Report Type: Report from Study
  Country: CN (occurrence: CN)
  Receive Date: 20241017
  Receipt Date: 20241018
  Transmission Date: 20250114
  Serious: No
  Sender: ROCHE
  Company Number: CN-ROCHE-3508620

PATIENT

DRUGS (4)
  1. RITUXIMAB [Suspect]
     Active Substance: RITUXIMAB
     Indication: Systemic lupus erythematosus
     Dosage: 0.6 G X 2, 0.6 G X 1 ON DAY 1, DAY 14
     Route: 065
  2. RITUXIMAB [Suspect]
     Active Substance: RITUXIMAB
     Dosage: 0.5 G X 2, 0.5 G X 4, 0.5 G X 6, 0.5 G X 7,
     Route: 065
  3. RITUXIMAB [Suspect]
     Active Substance: RITUXIMAB
     Dosage: 0.2 G X 4,
     Route: 065
  4. RITUXIMAB [Suspect]
     Active Substance: RITUXIMAB
     Dosage: 0.4 G X 2
     Route: 065

REACTIONS (3)
  - Blood immunoglobulin G decreased [Unknown]
  - Herpes simplex [Recovered/Resolved]
  - Pneumonia [Recovered/Resolved]
